FAERS Safety Report 9249453 (Version 2)
Quarter: 2013Q2

REPORT INFORMATION
  Report Type: Report from Study
  Country: US (occurrence: US)
  Receive Date: 20130423
  Receipt Date: 20130517
  Transmission Date: 20140414
  Serious: Yes (Death, Hospitalization, Other)
  Sender: FDA-Public Use
  Company Number: US-BRISTOL-MYERS SQUIBB COMPANY-18720342

PATIENT
  Age: 62 Year
  Sex: Female
  Weight: 111.39 kg

DRUGS (1)
  1. IXEMPRA [Suspect]
     Indication: UTERINE CANCER
     Dosage: TOTAL DOSE-80MG?LAST DOSE-22JAN13,05MAR2013
     Route: 042
     Dates: start: 20121030

REACTIONS (13)
  - Malignant neoplasm progression [Fatal]
  - Respiratory failure [Fatal]
  - Pneumothorax [Recovering/Resolving]
  - Subcutaneous emphysema [Recovering/Resolving]
  - Localised oedema [Recovering/Resolving]
  - Non-cardiac chest pain [Recovering/Resolving]
  - Metastases to central nervous system [Not Recovered/Not Resolved]
  - Hypophosphataemia [Recovered/Resolved]
  - Neutrophil count decreased [Recovered/Resolved]
  - White blood cell count decreased [Recovered/Resolved]
  - Headache [Not Recovered/Not Resolved]
  - Depressed level of consciousness [Unknown]
  - Embolism [Unknown]
